FAERS Safety Report 7985154-2 (Version None)
Quarter: 2011Q4

REPORT INFORMATION
  Report Type: 
  Country: None (occurrence: None)
  Receive Date: 20111213
  Receipt Date: 20111209
  Transmission Date: 20120403
  Serious: Yes (Hospitalization, Disabling, Other)
  Sender: FDA-Public Use
  Company Number: 2011SP014621

PATIENT
  Age: 38 Year
  Sex: Female
  Weight: 86.1834 kg

DRUGS (9)
  1. AXERT [Concomitant]
  2. NUVARING [Suspect]
     Indication: CONTRACEPTION
     Dates: start: 20080101, end: 20090426
  3. NUVARING [Suspect]
     Indication: MIGRAINE
     Dates: start: 20080101, end: 20090426
  4. SKELAXIN [Concomitant]
  5. ZANAFLEX [Concomitant]
  6. KEPPRA [Concomitant]
  7. XANAX [Concomitant]
  8. VICODIN [Concomitant]
  9. DIAMOX SRC [Concomitant]

REACTIONS (41)
  - SYNCOPE [None]
  - DRUG HYPERSENSITIVITY [None]
  - WEIGHT INCREASED [None]
  - PARAESTHESIA [None]
  - NAUSEA [None]
  - ENDOMETRIAL HYPERPLASIA [None]
  - PNEUMONIA [None]
  - PRESYNCOPE [None]
  - VOMITING [None]
  - AMNESIA [None]
  - COAGULOPATHY [None]
  - ASTHMA [None]
  - RASH PRURITIC [None]
  - FLATULENCE [None]
  - CONFUSIONAL STATE [None]
  - MENORRHAGIA [None]
  - PULMONARY EMBOLISM [None]
  - DEEP VEIN THROMBOSIS [None]
  - LIVER DISORDER [None]
  - HYPOAESTHESIA [None]
  - BLOOD TRIGLYCERIDES INCREASED [None]
  - HAEMATEMESIS [None]
  - RETCHING [None]
  - ADENOIDAL HYPERTROPHY [None]
  - MENSTRUATION IRREGULAR [None]
  - HEPATIC ENZYME INCREASED [None]
  - FATIGUE [None]
  - SNORING [None]
  - ABDOMINAL DISTENSION [None]
  - ALOPECIA [None]
  - SINUS BRADYCARDIA [None]
  - CONSTIPATION [None]
  - DIZZINESS [None]
  - HEPATIC STEATOSIS [None]
  - HYPOTENSION [None]
  - POLYCYSTIC OVARIES [None]
  - URINARY TRACT INFECTION [None]
  - FUNGAL INFECTION [None]
  - HYPERLIPIDAEMIA [None]
  - INSOMNIA [None]
  - INTERNATIONAL NORMALISED RATIO DECREASED [None]
